FAERS Safety Report 6976628-1 (Version None)
Quarter: 2010Q3

REPORT INFORMATION
  Report Type: 
  Country: None (occurrence: None)
  Receive Date: 20100910
  Receipt Date: 20090430
  Transmission Date: 20110219
  Serious: No
  Sender: FDA-Public Use
  Company Number: US-WYE-H09174909

PATIENT
  Sex: Female

DRUGS (6)
  1. PRISTIQ [Suspect]
     Indication: DEPRESSION
     Route: 048
     Dates: start: 20080701, end: 20080701
  2. PRISTIQ [Suspect]
     Route: 048
     Dates: start: 20080601, end: 20090422
  3. PRISTIQ [Suspect]
     Route: 048
     Dates: start: 20090423
  4. FLUOXETINE [Concomitant]
  5. OLANZAPINE [Concomitant]
  6. ATIVAN [Concomitant]

REACTIONS (1)
  - DRUG EFFECT DECREASED [None]
